FAERS Safety Report 18513887 (Version 1)
Quarter: 2020Q4

REPORT INFORMATION
  Report Type: Spontaneous
  Country: JP (occurrence: JP)
  Receive Date: 20201118
  Receipt Date: 20201118
  Transmission Date: 20210114
  Serious: Yes (Other)
  Sender: FDA-Public Use
  Company Number: JP-SUN PHARMACEUTICAL INDUSTRIES LTD-2020RR-267163

PATIENT
  Age: 72 Year
  Sex: Male
  Weight: 54 kg

DRUGS (7)
  1. TS-1 [Suspect]
     Active Substance: GIMERACIL\OTERACIL\TEGAFUR
     Indication: GASTRIC CANCER
     Dosage: 40 MILLIGRAM, BID ((REDUCED TO 67% FROM 60 MG/ADMINISTRATION)
     Route: 065
  2. DEXAMETHASONE. [Suspect]
     Active Substance: DEXAMETHASONE
     Indication: ANTIEMETIC SUPPORTIVE CARE
     Dosage: 9.9 MILLIGRAM, UNK
     Route: 065
  3. DENOSUMAB [Suspect]
     Active Substance: DENOSUMAB
     Indication: SPINAL PAIN
     Dosage: 120 MILLIGRAM, UNK
     Route: 065
  4. LX-T (LOXONIN TABE) [Suspect]
     Active Substance: LOXOPROFEN SODIUM
     Indication: SPINAL PAIN
     Dosage: UNK
     Route: 065
  5. OXALIPLATIN. [Suspect]
     Active Substance: OXALIPLATIN
     Indication: GASTRIC CANCER
     Dosage: 130 MILLIGRAM, (REDUCED TO 86% FROM 100 MM^2)
     Route: 065
  6. GRANISETRON [Suspect]
     Active Substance: GRANISETRON
     Indication: ANTIEMETIC SUPPORTIVE CARE
     Dosage: 3 MILLIGRAM, UNK
     Route: 065
  7. TRAMADOL. [Suspect]
     Active Substance: TRAMADOL
     Indication: SPINAL PAIN
     Dosage: 25 MILLIGRAM, QID
     Route: 065

REACTIONS (3)
  - Nausea [Unknown]
  - Drug ineffective [Unknown]
  - Decreased appetite [Unknown]
